FAERS Safety Report 26079339 (Version 1)
Quarter: 2025Q4

REPORT INFORMATION
  Report Type: Spontaneous
  Country: US (occurrence: US)
  Receive Date: 20251123
  Receipt Date: 20251123
  Transmission Date: 20260118
  Serious: No
  Sender: GALPHARM INTERNATIONAL
  Company Number: US-PERRIGO-25US009274

PATIENT
  Sex: Female

DRUGS (3)
  1. OPILL [Suspect]
     Active Substance: NORGESTREL
     Indication: Product used for unknown indication
     Dosage: UNKNOWN, UNKNOWN
     Route: 048
     Dates: start: 202505, end: 2025
  2. OPILL [Suspect]
     Active Substance: NORGESTREL
     Dosage: UNKNOWN, UNKNOWN
     Route: 048
     Dates: start: 2025
  3. OPILL [Suspect]
     Active Substance: NORGESTREL
     Dosage: UNKNOWN, QD
     Route: 048
     Dates: start: 202504

REACTIONS (5)
  - Vulvovaginal pain [Unknown]
  - Intermenstrual bleeding [Not Recovered/Not Resolved]
  - Muscle spasms [Recovered/Resolved]
  - Heavy menstrual bleeding [Unknown]
  - Polymenorrhoea [Not Recovered/Not Resolved]

NARRATIVE: CASE EVENT DATE: 20250101
